FAERS Safety Report 26130222 (Version 1)
Quarter: 2025Q4

REPORT INFORMATION
  Report Type: Spontaneous
  Country: US (occurrence: US)
  Receive Date: 20251208
  Receipt Date: 20251208
  Transmission Date: 20260117
  Serious: No
  Sender: ARS PHARMACEUTICALS OPERATIONS, INC.
  Company Number: US-ARS PHARMACEUTICALS OPERATIONS, INC.-2025ARP00121

PATIENT
  Sex: Female

DRUGS (3)
  1. NEFFY [Suspect]
     Active Substance: EPINEPHRINE
     Indication: Angioedema
     Dosage: UNK, UNKNOWN
     Route: 045
  2. EPIPEN [Concomitant]
     Active Substance: EPINEPHRINE
     Dosage: UNK
  3. AUVI-Q [Concomitant]
     Active Substance: EPINEPHRINE
     Dosage: UNK

REACTIONS (1)
  - Nasal disorder [Unknown]

NARRATIVE: CASE EVENT DATE: 20250101
